FAERS Safety Report 17973219 (Version 1)
Quarter: 2020Q3

REPORT INFORMATION
  Report Type: Spontaneous
  Country: US (occurrence: US)
  Receive Date: 20200701
  Receipt Date: 20200701
  Transmission Date: 20201103
  Serious: Yes (Disabling)
  Sender: FDA-Public Use
  Company Number: None

PATIENT
  Age: 40 Year
  Sex: Female
  Weight: 76.5 kg

DRUGS (2)
  1. CIPRO [Suspect]
     Active Substance: CIPROFLOXACIN HYDROCHLORIDE
     Indication: URINARY TRACT INFECTION
     Route: 048
  2. DAILY MULTI VITAMIN [Concomitant]

REACTIONS (9)
  - Depressed level of consciousness [None]
  - Insomnia [None]
  - Loss of personal independence in daily activities [None]
  - Gastrointestinal motility disorder [None]
  - Fatigue [None]
  - Pain in extremity [None]
  - Arthralgia [None]
  - Asthenia [None]
  - Rheumatoid arthritis [None]
